FAERS Safety Report 16927097 (Version 1)
Quarter: 2019Q4

REPORT INFORMATION
  Report Type: Report from Study
  Country: GB (occurrence: GB)
  Receive Date: 20191016
  Receipt Date: 20191016
  Transmission Date: 20200122
  Serious: Yes (Death, Hospitalization)
  Sender: FDA-Public Use
  Company Number: GB-MYLANLABS-2019M1097011

PATIENT

DRUGS (2)
  1. AMIODARONE [Suspect]
     Active Substance: AMIODARONE
     Indication: PRODUCT USED FOR UNKNOWN INDICATION
     Dosage: UNK
     Route: 065
  2. ENTRESTO [Suspect]
     Active Substance: SACUBITRIL\VALSARTAN
     Indication: CARDIAC FAILURE CHRONIC
     Dosage: (49MG SACUBITRAL/51MG VALSARTAN)
     Route: 048
     Dates: start: 20160923, end: 20180218

REACTIONS (6)
  - Myocardial ischaemia [Fatal]
  - Lower respiratory tract infection [Fatal]
  - Cardiac failure [Fatal]
  - Pulmonary fibrosis [Fatal]
  - Acute kidney injury [Fatal]
  - Congestive cardiomyopathy [Fatal]

NARRATIVE: CASE EVENT DATE: 1988
